FAERS Safety Report 4855411-7 (Version None)
Quarter: 2005Q4

REPORT INFORMATION
  Report Type: 
  Country: None (occurrence: None)
  Receive Date: 20051125
  Receipt Date: 20050420
  Transmission Date: 20060501
  Serious: Yes (Other)
  Sender: FDA-Public Use
  Company Number: US-JNJFOC-20050300780

PATIENT
  Sex: Male

DRUGS (2)
  1. LEVAQUIN [Suspect]
     Indication: PNEUMONIA
  2. Z PACK (ANTIBIOTICS) [Concomitant]

REACTIONS (1)
  - HAEMOLYTIC ANAEMIA [None]
